FAERS Safety Report 6779193-7 (Version None)
Quarter: 2010Q2

REPORT INFORMATION
  Report Type: 
  Country: None (occurrence: None)
  Receive Date: 20100618
  Receipt Date: 20100608
  Transmission Date: 20101027
  Serious: Yes (Death, Hospitalization, Other)
  Sender: FDA-Public Use
  Company Number: JP-ROCHE-673932

PATIENT
  Sex: Female
  Weight: 47 kg

DRUGS (10)
  1. AVASTIN [Suspect]
     Indication: LARGE INTESTINE CARCINOMA
     Route: 041
     Dates: start: 20081112, end: 20091013
  2. ELPLAT [Suspect]
     Indication: RECTAL CANCER RECURRENT
     Route: 041
     Dates: start: 20081112, end: 20090512
  3. LEUCOVORIN CALCIUM [Suspect]
     Indication: RECTAL CANCER RECURRENT
     Route: 041
     Dates: start: 20081112, end: 20090101
  4. LEUCOVORIN CALCIUM [Suspect]
     Route: 041
     Dates: start: 20090101, end: 20091013
  5. FLUOROURACIL [Suspect]
     Indication: RECTAL CANCER RECURRENT
     Route: 041
     Dates: start: 20081112, end: 20090101
  6. FLUOROURACIL [Suspect]
     Route: 041
     Dates: start: 20090101, end: 20091013
  7. ERBITUX [Suspect]
     Indication: RECTAL CANCER RECURRENT
     Route: 041
     Dates: start: 20091201, end: 20091215
  8. IRINOTECAN HYDROCHLORIDE [Suspect]
     Indication: RECTAL CANCER RECURRENT
     Route: 041
     Dates: start: 20091201, end: 20091201
  9. GRANISETRON HYDROCHLORIDE [Concomitant]
     Route: 042
     Dates: start: 20081112, end: 20091201
  10. DEXART [Concomitant]
     Route: 042
     Dates: start: 20081112, end: 20091201

REACTIONS (6)
  - ENTEROVESICAL FISTULA [None]
  - GASTROINTESTINAL HAEMORRHAGE [None]
  - HYPERTENSION [None]
  - RESPIRATORY FAILURE [None]
  - SEPSIS [None]
  - URINARY TRACT INFECTION [None]
